FAERS Safety Report 13234612 (Version 8)
Quarter: 2020Q4

REPORT INFORMATION
  Report Type: Spontaneous
  Country: US (occurrence: US)
  Receive Date: 20170215
  Receipt Date: 20201209
  Transmission Date: 20210113
  Serious: No
  Sender: FDA-Public Use
  Company Number: US-PFIZER INC-2017065902

PATIENT
  Age: 74 Year
  Sex: Male
  Weight: 113.4 kg

DRUGS (3)
  1. LYRICA [Suspect]
     Active Substance: PREGABALIN
     Indication: PAIN
     Dosage: 150 MG, UNK
  2. LYRICA [Suspect]
     Active Substance: PREGABALIN
     Indication: BACK PAIN
  3. LYRICA [Suspect]
     Active Substance: PREGABALIN
     Indication: PERIPHERAL SWELLING
     Dosage: 450 MG, 1X/DAY (150 MG, THREE CAPSULES A DAY)

REACTIONS (4)
  - Drug ineffective [Unknown]
  - Burning sensation [Unknown]
  - Insomnia [Unknown]
  - Swelling [Unknown]
